FAERS Safety Report 9880940 (Version 1)
Quarter: 2014Q1

REPORT INFORMATION
  Report Type: Report from Study
  Country: US (occurrence: US)
  Receive Date: 20140207
  Receipt Date: 20140207
  Transmission Date: 20141002
  Serious: Yes (Other)
  Sender: FDA-Public Use
  Company Number: PHEH2014US002297

PATIENT
  Sex: Female

DRUGS (16)
  1. GLEEVEC [Suspect]
     Indication: CHRONIC MYELOID LEUKAEMIA
     Dosage: 400 MG, QD
     Route: 048
  2. LIPITOR [Concomitant]
     Dosage: UNK UKN, UNK
  3. HYDROCODONE [Concomitant]
     Dosage: UNK UKN, UNK
  4. LEVOTHYROXINE [Concomitant]
     Dosage: UNK UKN, UNK
  5. CLONAZEPAM [Concomitant]
     Dosage: UNK UKN, UNK
  6. PANTOPRAZOLE [Concomitant]
     Dosage: UNK UKN, UNK
  7. BENAZEPRIL [Concomitant]
     Dosage: UNK UKN, UNK
  8. GLYBURIDE [Concomitant]
     Dosage: UNK UKN, UNK
  9. ULTRAM//TRAMADOL HYDROCHLORIDE [Concomitant]
     Dosage: UNK UKN, UNK
  10. COMBIVENT [Concomitant]
     Dosage: UNK UKN, UNK
  11. VERAPAMIL [Concomitant]
     Dosage: UNK UKN, UNK
  12. PROCHLORPERAZINE [Concomitant]
     Dosage: UNK UKN, UNK
  13. ZOFRAN [Concomitant]
     Dosage: UNK UKN, UNK
  14. LETROZOLE [Concomitant]
     Dosage: UNK UKN, UNK
  15. METOPROLOL [Concomitant]
     Dosage: UNK UKN, UNK
  16. ASA [Concomitant]
     Dosage: UNK UKN, UNK

REACTIONS (4)
  - Diabetic neuropathy [Not Recovered/Not Resolved]
  - Rhabdomyolysis [Not Recovered/Not Resolved]
  - Myalgia [Not Recovered/Not Resolved]
  - Muscle spasms [Not Recovered/Not Resolved]
